FAERS Safety Report 16913443 (Version 1)
Quarter: 2019Q4

REPORT INFORMATION
  Report Type: Spontaneous
  Country: CA (occurrence: CA)
  Receive Date: 20191014
  Receipt Date: 20191014
  Transmission Date: 20200122
  Serious: Yes (Other)
  Sender: FDA-Public Use
  Company Number: CA-PFIZER INC-2019439082

PATIENT
  Age: 40 Year
  Sex: Male

DRUGS (3)
  1. NUTRILITE OMEGA 3 COMPLEX [Concomitant]
     Dosage: UNK
  2. LIPITOR [Suspect]
     Active Substance: ATORVASTATIN CALCIUM
     Indication: BLOOD TRIGLYCERIDES INCREASED
     Dosage: UNK
     Route: 065
  3. LIPIDIL [Concomitant]
     Active Substance: FENOFIBRATE
     Dosage: UNK

REACTIONS (3)
  - Drug ineffective [Unknown]
  - Pharyngeal oedema [Unknown]
  - Dyspnoea [Unknown]
